FAERS Safety Report 10163378 (Version 1)
Quarter: 2014Q2

REPORT INFORMATION
  Report Type: Report from Study
  Country: US (occurrence: US)
  Receive Date: 20140509
  Receipt Date: 20140509
  Transmission Date: 20141212
  Serious: Yes (Other)
  Sender: FDA-Public Use
  Company Number: PHEH2014US009295

PATIENT
  Sex: Female
  Weight: 113.38 kg

DRUGS (1)
  1. GILENYA [Suspect]
     Indication: MULTIPLE SCLEROSIS
     Dosage: 0.5 MG, QD
     Dates: start: 20121203

REACTIONS (14)
  - Meniscus injury [Unknown]
  - Cyst [Unknown]
  - Meralgia paraesthetica [Unknown]
  - Sensory disturbance [Unknown]
  - Fatigue [Unknown]
  - Paraesthesia [Unknown]
  - Hypoaesthesia [Unknown]
  - Discomfort [Unknown]
  - Poor quality sleep [Unknown]
  - Sleep disorder [Unknown]
  - Stress [Unknown]
  - Pain [Unknown]
  - Faecal incontinence [Unknown]
  - Urinary incontinence [Unknown]
